FAERS Safety Report 24955781 (Version 1)
Quarter: 2025Q1

REPORT INFORMATION
  Report Type: Report from Study
  Country: US (occurrence: US)
  Receive Date: 20250211
  Receipt Date: 20250211
  Transmission Date: 20250409
  Serious: Yes (Other)
  Sender: ACADIA PHARMACEUTICALS
  Company Number: US-ACADIA PHARMACEUTICALS INC.-ACA-2025-PIM-001038

PATIENT
  Sex: Male

DRUGS (33)
  1. NUPLAZID [Suspect]
     Active Substance: PIMAVANSERIN TARTRATE
     Indication: Parkinson^s disease
     Dosage: 34 MILLIGRAM, QD
     Route: 048
  2. NUPLAZID [Suspect]
     Active Substance: PIMAVANSERIN TARTRATE
     Indication: Dyskinesia
  3. NUPLAZID [Suspect]
     Active Substance: PIMAVANSERIN TARTRATE
     Indication: On and off phenomenon
  4. ELIQUIS [Concomitant]
     Active Substance: APIXABAN
  5. FUROSEMIDE [Concomitant]
     Active Substance: FUROSEMIDE
  6. LIOTHYRONINE SODIUM [Concomitant]
     Active Substance: LIOTHYRONINE SODIUM
  7. RASAGILINE MESYLATE [Concomitant]
     Active Substance: RASAGILINE MESYLATE
  8. ATORVASTATIN CALCIUM [Concomitant]
     Active Substance: ATORVASTATIN CALCIUM
  9. CELECOXIB [Concomitant]
     Active Substance: CELECOXIB
  10. PANTOPRAZOLE SODIUM [Concomitant]
     Active Substance: PANTOPRAZOLE SODIUM
  11. LISINOPRIL [Concomitant]
     Active Substance: LISINOPRIL
  12. PACERONE [Concomitant]
     Active Substance: AMIODARONE HYDROCHLORIDE
  13. KOMBIGLYZE XR [Concomitant]
     Active Substance: METFORMIN HYDROCHLORIDE\SAXAGLIPTIN HYDROCHLORIDE
  14. GABAPENTIN [Concomitant]
     Active Substance: GABAPENTIN
  15. MYRBETRIQ [Concomitant]
     Active Substance: MIRABEGRON
  16. JARDIANCE [Concomitant]
     Active Substance: EMPAGLIFLOZIN
  17. DILTIAZEM [Concomitant]
     Active Substance: DILTIAZEM
  18. PYRIDOSTIGMINE BROMIDE [Concomitant]
     Active Substance: PYRIDOSTIGMINE BROMIDE
  19. LEVOTHYROXINE SODIUM [Concomitant]
     Active Substance: LEVOTHYROXINE SODIUM
  20. FAMOTIDINE [Concomitant]
     Active Substance: FAMOTIDINE
  21. MIDODRINE [Concomitant]
     Active Substance: MIDODRINE
  22. CARBIDOPA\LEVODOPA [Concomitant]
     Active Substance: CARBIDOPA\LEVODOPA
  23. MELATONIN [Concomitant]
     Active Substance: MELATONIN
  24. PREDNISOLONE ACETATE [Concomitant]
     Active Substance: PREDNISOLONE ACETATE
  25. RESTASIS [Concomitant]
     Active Substance: CYCLOSPORINE
  26. ONGLYZA [Concomitant]
     Active Substance: SAXAGLIPTIN HYDROCHLORIDE
  27. TYLENOL [Concomitant]
     Active Substance: ACETAMINOPHEN
  28. LATANOPROST [Concomitant]
     Active Substance: LATANOPROST
  29. MODAFINIL [Concomitant]
     Active Substance: MODAFINIL
  30. BIOFREEZE [Concomitant]
     Active Substance: MENTHOL
  31. ROCKLATAN [Concomitant]
     Active Substance: LATANOPROST\NETARSUDIL MESYLATE
  32. GENTEAL TEARS [HYPROMELLOSE] [Concomitant]
  33. AMIODARONE [Concomitant]
     Active Substance: AMIODARONE

REACTIONS (2)
  - Hallucination [Unknown]
  - Intentional dose omission [Unknown]
